FAERS Safety Report 4455163-9 (Version None)
Quarter: 2004Q3

REPORT INFORMATION
  Report Type: 
  Country: None (occurrence: None)
  Receive Date: 20040917
  Receipt Date: 20040909
  Transmission Date: 20050211
  Serious: No
  Sender: FDA-Public Use
  Company Number: A044-002-005178

PATIENT
  Age: 82 Year
  Sex: Female
  Weight: 52 kg

DRUGS (1)
  1. ARICEPT [Suspect]
     Dosage: 1 IN 1 D, ORAL
     Route: 048
     Dates: start: 20040801, end: 20040901

REACTIONS (4)
  - AGGRESSION [None]
  - GAMMA-GLUTAMYLTRANSFERASE INCREASED [None]
  - PERSONALITY CHANGE [None]
  - PSYCHOMOTOR HYPERACTIVITY [None]
